FAERS Safety Report 21688457 (Version 1)
Quarter: 2022Q4

REPORT INFORMATION
  Report Type: Spontaneous
  Country: US (occurrence: US)
  Receive Date: 20221206
  Receipt Date: 20221206
  Transmission Date: 20230113
  Serious: No
  Sender: FDA-Public Use
  Company Number: US-JNJFOC-20221200338

PATIENT
  Age: 79 Year
  Sex: Female
  Weight: 79.450 kg

DRUGS (3)
  1. XARELTO [Suspect]
     Active Substance: RIVAROXABAN
     Indication: Deep vein thrombosis
     Dosage: STARTER PACK
     Route: 048
  2. XARELTO [Suspect]
     Active Substance: RIVAROXABAN
     Route: 048
  3. CALCIUM\CHOLECALCIFEROL [Concomitant]
     Active Substance: CALCIUM\CHOLECALCIFEROL

REACTIONS (4)
  - Anal incontinence [Not Recovered/Not Resolved]
  - Haemorrhoidal haemorrhage [Unknown]
  - Hypertension [Unknown]
  - Joint stiffness [Unknown]

NARRATIVE: CASE EVENT DATE: 20221127
